FAERS Safety Report 6496686-0 (Version None)
Quarter: 2009Q4

REPORT INFORMATION
  Report Type: 
  Country: None (occurrence: None)
  Receive Date: 20091210
  Receipt Date: 20091127
  Transmission Date: 20100525
  Serious: Yes (Other)
  Sender: FDA-Public Use
  Company Number: 1000009564

PATIENT
  Age: 17 Year
  Sex: Male
  Weight: 70 kg

DRUGS (4)
  1. LEXAPRO [Suspect]
     Indication: DEPRESSED MOOD
     Dosage: ORAL; 10 MG (10 MG, 1 IN 1 D), ORAL
     Route: 048
     Dates: start: 20090901, end: 20090901
  2. LEXAPRO [Suspect]
     Indication: DEPRESSED MOOD
     Dosage: ORAL; 10 MG (10 MG, 1 IN 1 D), ORAL
     Route: 048
     Dates: start: 20090901
  3. BENZODIAZEPINE (TABELTS) [Concomitant]
  4. CANNABIS (TABLETS) [Concomitant]

REACTIONS (6)
  - ANXIETY [None]
  - DRUG TOXICITY [None]
  - INTENTIONAL OVERDOSE [None]
  - PALPITATIONS [None]
  - SLEEP DISORDER [None]
  - TREMOR [None]
